FAERS Safety Report 6964194-6 (Version None)
Quarter: 2010Q3

REPORT INFORMATION
  Report Type: 
  Country: None (occurrence: None)
  Receive Date: 20100903
  Receipt Date: 20100825
  Transmission Date: 20110219
  Serious: Yes (Life-Threatening, Hospitalization)
  Sender: FDA-Public Use
  Company Number: JP-BIOGENIDEC-2009BI007621

PATIENT
  Age: 36 Year
  Sex: Male

DRUGS (24)
  1. AVONEX [Suspect]
     Indication: RELAPSING-REMITTING MULTIPLE SCLEROSIS
     Route: 030
     Dates: start: 20080725, end: 20090725
  2. AVONEX [Suspect]
     Route: 030
     Dates: start: 20090831
  3. PRIDOL [Concomitant]
     Indication: RELAPSING-REMITTING MULTIPLE SCLEROSIS
     Dates: start: 20080807, end: 20080809
  4. PRIDOL [Concomitant]
     Dates: start: 20080904, end: 20080906
  5. PRIDOL [Concomitant]
     Dates: start: 20090723, end: 20090725
  6. PRIDOL [Concomitant]
     Dates: start: 20080821, end: 20080823
  7. AZANIN [Concomitant]
     Indication: RELAPSING-REMITTING MULTIPLE SCLEROSIS
     Route: 048
     Dates: start: 20080201, end: 20090725
  8. KETAS [Concomitant]
     Dates: start: 20080725
  9. METHYCOBAL [Concomitant]
     Dates: start: 20080725
  10. MUCODYNE [Concomitant]
     Dates: start: 20080725
  11. LIPITOR [Concomitant]
     Dates: start: 20080725, end: 20100325
  12. MAGNESIUM OXIDE [Concomitant]
     Dates: start: 20080725, end: 20080821
  13. MAGNESIUM OXIDE [Concomitant]
     Dates: start: 20080822, end: 20090725
  14. PURSENNID [Concomitant]
     Dates: start: 20080725, end: 20080821
  15. IBRUPROFEN [Concomitant]
     Dates: start: 20080725
  16. ADETPHOS [Concomitant]
     Dates: start: 20080725
  17. MUCOSTA [Concomitant]
     Dates: start: 20080725
  18. PAXIL [Concomitant]
     Dates: start: 20080822, end: 20090725
  19. PAXIL [Concomitant]
     Dates: start: 20100406, end: 20100429
  20. PAXIL [Concomitant]
     Dates: start: 20100430, end: 20100722
  21. TAKEPRON [Concomitant]
     Dates: start: 20080822, end: 20100121
  22. BONALON [Concomitant]
     Dates: start: 20090914
  23. LENDORMIN [Concomitant]
     Dates: start: 20100419, end: 20100429
  24. LENDORMIN [Concomitant]
     Dates: start: 20100430

REACTIONS (10)
  - BLOOD CREATINE PHOSPHOKINASE INCREASED [None]
  - DEPRESSION [None]
  - HEPATIC FUNCTION ABNORMAL [None]
  - INFLUENZA LIKE ILLNESS [None]
  - INSOMNIA [None]
  - MEMORY IMPAIRMENT [None]
  - MENINGITIS BACTERIAL [None]
  - MULTIPLE SCLEROSIS RELAPSE [None]
  - NEUTROPHIL COUNT INCREASED [None]
  - OPTIC NEURITIS [None]
